FAERS Safety Report 8924828 (Version 1)
Quarter: 2012Q4

REPORT INFORMATION
  Report Type: 
  Country: SE (occurrence: SE)
  Receive Date: 20121126
  Receipt Date: 20121126
  Transmission Date: 20130627
  Serious: Yes (Hospitalization, Other)
  Sender: FDA-Public Use
  Company Number: SE-ASTRAZENECA-2012SE88770

PATIENT
  Age: 4 Month
  Sex: Female
  Weight: 7 kg

DRUGS (7)
  1. SYNAGIS [Suspect]
     Indication: ANTIVIRAL PROPHYLAXIS
     Dosage: 100 MG/ML MONTHLY
     Route: 030
     Dates: start: 20111110, end: 20120405
  2. CAPTOPRIL [Concomitant]
     Indication: VENTRICULAR SEPTAL DEFECT
     Route: 048
  3. SPIRONOLACTONE [Concomitant]
     Indication: VENTRICULAR SEPTAL DEFECT
     Route: 048
  4. IMPUGAN [Concomitant]
     Indication: VENTRICULAR SEPTAL DEFECT
     Route: 048
  5. ACETYLSALICYLIC ACID [Concomitant]
     Indication: VENTRICULAR SEPTAL DEFECT
     Route: 048
  6. KAJOS [Concomitant]
     Indication: VENTRICULAR SEPTAL DEFECT
  7. ADDEX NACL [Concomitant]
     Indication: VENTRICULAR SEPTAL DEFECT

REACTIONS (13)
  - Pneumonia [Unknown]
  - Nasopharyngitis [Recovered/Resolved]
  - Atelectasis [Recovered/Resolved]
  - Diaphragmatic paralysis [Recovered/Resolved]
  - Pulmonary sepsis [Unknown]
  - Malaise [Unknown]
  - Tachycardia [Unknown]
  - Streptococcus test positive [Unknown]
  - C-reactive protein increased [Unknown]
  - Procalcitonin increased [Unknown]
  - Drug hypersensitivity [Unknown]
  - Clostridium test positive [Unknown]
  - Calicivirus test positive [Unknown]
